FAERS Safety Report 6640277-5 (Version None)
Quarter: 2010Q1

REPORT INFORMATION
  Report Type: 
  Country: None (occurrence: None)
  Receive Date: 20100302
  Receipt Date: 20091104
  Transmission Date: 20100710
  Serious: No
  Sender: FDA-Public Use
  Company Number: MC200900406

PATIENT
  Sex: Male

DRUGS (3)
  1. CLEVIPREX [Suspect]
     Dosage: UP TO 32 MG, HR, INTRAVENOUS
     Route: 042
  2. OXYCONTIN [Concomitant]
  3. PROPOFOL [Concomitant]

REACTIONS (1)
  - BLOOD PRESSURE INADEQUATELY CONTROLLED [None]
